FAERS Safety Report 4935166-8 (Version None)
Quarter: 2006Q1

REPORT INFORMATION
  Report Type: 
  Country: None (occurrence: None)
  Receive Date: 20060302
  Receipt Date: 20060219
  Transmission Date: 20060701
  Serious: Yes (Other)
  Sender: FDA-Public Use
  Company Number: 2006025041

PATIENT
  Age: 51 Year
  Sex: Female
  Weight: 49.8957 kg

DRUGS (7)
  1. ZYRTEC [Suspect]
     Indication: DRUG HYPERSENSITIVITY
     Dosage: TWO TEASPOONS (Q24H), ORAL
     Route: 048
     Dates: start: 20000101
  2. CLINDAMYCIN [Suspect]
     Indication: ILL-DEFINED DISORDER
     Dates: start: 20060213, end: 20060201
  3. ALL OTHER NON-THERAPEUTIC PRODUCTS (ALL OTHER NON-THERAPEUTIC PRODUCTS [Suspect]
     Indication: ILL-DEFINED DISORDER
  4. SOMA [Suspect]
     Indication: PAIN
     Dosage: 1050 MG (350 MG, 3 IN 1 D),
  5. ALL OTHER THERAPEUTIC PRODUCTS (ALL OTHER THERAPEUTIC PRODUCTS) [Suspect]
     Indication: ILL-DEFINED DISORDER
  6. PEPCID [Suspect]
     Indication: STOMACH DISCOMFORT
     Dates: start: 20060101, end: 20060101
  7. VALIUM [Concomitant]

REACTIONS (12)
  - DRUG HYPERSENSITIVITY [None]
  - DRUG INEFFECTIVE [None]
  - DRUG INTERACTION [None]
  - DRY MOUTH [None]
  - DRY THROAT [None]
  - FOOD INTERACTION [None]
  - OEDEMA MOUTH [None]
  - PHARYNGOLARYNGEAL PAIN [None]
  - PRURITUS [None]
  - STOMACH DISCOMFORT [None]
  - SWELLING [None]
  - THORACIC OUTLET SYNDROME [None]
